FAERS Safety Report 11174341 (Version 1)
Quarter: 2015Q2

REPORT INFORMATION
  Report Type: Spontaneous
  Country: MX (occurrence: MX)
  Receive Date: 20150609
  Receipt Date: 20150609
  Transmission Date: 20150821
  Serious: No
  Sender: FDA-Public Use
  Company Number: MX-ELI_LILLY_AND_COMPANY-MX201501002371

PATIENT
  Sex: Male
  Weight: 74 kg

DRUGS (1)
  1. CIALIS [Suspect]
     Active Substance: TADALAFIL
     Indication: ERECTILE DYSFUNCTION
     Dosage: 5 MG, QD
     Route: 065
     Dates: start: 201401

REACTIONS (4)
  - Ear discomfort [Recovered/Resolved]
  - Inflammation [Recovered/Resolved]
  - Abdominal discomfort [Unknown]
  - Vision blurred [Unknown]
